FAERS Safety Report 9858180 (Version 1)
Quarter: 2014Q1

REPORT INFORMATION
  Report Type: Spontaneous
  Country: US (occurrence: None)
  Receive Date: 20140129
  Receipt Date: 20140129
  Transmission Date: 20141002
  Serious: Yes (Other)
  Sender: FDA-Public Use
  Company Number: None

PATIENT
  Sex: 0

DRUGS (1)
  1. HEPARIN [Suspect]
     Dosage: LOT# WH318N

REACTIONS (2)
  - Therapeutic response decreased [None]
  - Product quality issue [None]
